FAERS Safety Report 7110815-7 (Version None)
Quarter: 2010Q4

REPORT INFORMATION
  Report Type: 
  Country: None (occurrence: None)
  Receive Date: 20101118
  Receipt Date: 20091006
  Transmission Date: 20110411
  Serious: No
  Sender: FDA-Public Use
  Company Number: US-TEVA-209558USA

PATIENT
  Age: 5 Year
  Sex: Female

DRUGS (4)
  1. ALBUTEROL SULFATE AUTOHALER [Suspect]
     Indication: ASTHMA
     Dosage: 2 PUFFS EVERY 4-6H AS NEEDED
     Route: 055
     Dates: start: 20090910
  2. CETIRIZINE HYDROCHLORIDE [Concomitant]
     Dosage: 1 TEASPOON DAILY
  3. FLUTICASONE PROPIONATE [Concomitant]
     Dosage: 2 PUFFS
  4. SALBUTAMOL [Concomitant]
     Dosage: AS NEEDED

REACTIONS (3)
  - COUGH [None]
  - ERYTHEMA [None]
  - OROPHARYNGEAL PAIN [None]
